FAERS Safety Report 6581912-X (Version None)
Quarter: 2010Q1

REPORT INFORMATION
  Report Type: 
  Country: None (occurrence: None)
  Receive Date: 20100212
  Receipt Date: 20100212
  Transmission Date: 20100710
  Serious: Yes (Other)
  Sender: FDA-Public Use
  Company Number: None

PATIENT
  Age: 56 Year
  Sex: Male
  Weight: 74.7 kg

DRUGS (3)
  1. IOPROMIDE [Suspect]
     Indication: HYPOAESTHESIA
     Dosage: 100 ML ONCE IV
     Route: 042
     Dates: start: 20090928, end: 20090928
  2. IOPROMIDE [Suspect]
     Indication: PAIN IN EXTREMITY
     Dosage: 100 ML ONCE IV
     Route: 042
     Dates: start: 20090928, end: 20090928
  3. IOPROMIDE [Suspect]
     Indication: SPINAL FUSION SURGERY
     Dosage: 100 ML ONCE IV
     Route: 042
     Dates: start: 20090928, end: 20090928

REACTIONS (5)
  - CONTRAST MEDIA REACTION [None]
  - ERYTHEMA [None]
  - PRURITUS [None]
  - RASH [None]
  - URTICARIA [None]
